FAERS Safety Report 7458832-1 (Version None)
Quarter: 2011Q2

REPORT INFORMATION
  Report Type: 
  Country: None (occurrence: None)
  Receive Date: 20110504
  Receipt Date: 20110421
  Transmission Date: 20111010
  Serious: Yes (Other)
  Sender: FDA-Public Use
  Company Number: DE-ROCHE-774543

PATIENT
  Age: 58 Year
  Sex: Male

DRUGS (3)
  1. AVASTIN [Suspect]
     Route: 065
  2. PACLITAXEL [Suspect]
     Route: 065
  3. CARBOPLATIN [Suspect]
     Route: 065

REACTIONS (1)
  - CARDIAC ARREST [None]
